FAERS Safety Report 9476133 (Version 2)
Quarter: 2013Q3

REPORT INFORMATION
  Report Type: Report from Study
  Country: CN (occurrence: CN)
  Receive Date: 20130826
  Receipt Date: 20130826
  Transmission Date: 20140515
  Serious: Yes (Hospitalization)
  Sender: FDA-Public Use
  Company Number: PHHO2009CN12939

PATIENT
  Age: 47 Year
  Sex: Male
  Weight: 101 kg

DRUGS (1)
  1. ALISKIREN [Suspect]
     Indication: CARDIOVASCULAR DISORDER
     Route: 048
     Dates: start: 20090105

REACTIONS (12)
  - Asthma [Recovering/Resolving]
  - Chest discomfort [Recovering/Resolving]
  - Diabetic nephropathy [Recovering/Resolving]
  - Pleural effusion [Recovering/Resolving]
  - Anaemia [Recovering/Resolving]
  - Oedema [Recovering/Resolving]
  - Hypoproteinaemia [Recovering/Resolving]
  - Abdominal distension [Recovering/Resolving]
  - Muscular weakness [Recovering/Resolving]
  - Renal failure [Not Recovered/Not Resolved]
  - Nephrogenic anaemia [Not Recovered/Not Resolved]
  - Concomitant disease progression [Recovering/Resolving]
